FAERS Safety Report 16046258 (Version 2)
Quarter: 2019Q1

REPORT INFORMATION
  Report Type: Spontaneous
  Country: US (occurrence: US)
  Receive Date: 20190307
  Receipt Date: 20190314
  Transmission Date: 20190418
  Serious: No
  Sender: FDA-Public Use
  Company Number: US-BAYER-2019-047011

PATIENT
  Age: 3 Year
  Sex: Male
  Weight: 15.87 kg

DRUGS (1)
  1. MIRALAX [Suspect]
     Active Substance: POLYETHYLENE GLYCOL 3350
     Indication: GASTROINTESTINAL DISORDER
     Dosage: UNK(3/4 OF A CAPFUL UP TO 3 TIMES DAILY)
     Route: 048

REACTIONS (5)
  - Incorrect dosage administered [Unknown]
  - Incorrect product administration duration [Unknown]
  - Diarrhoea [Unknown]
  - Product use issue [None]
  - Mood altered [Unknown]
